FAERS Safety Report 17973976 (Version 1)
Quarter: 2020Q3

REPORT INFORMATION
  Report Type: Spontaneous
  Country: US (occurrence: US)
  Receive Date: 20200702
  Receipt Date: 20200702
  Transmission Date: 20201103
  Serious: Yes (Other)
  Sender: FDA-Public Use
  Company Number: None

PATIENT
  Age: 64 Year
  Sex: Female
  Weight: 80.9 kg

DRUGS (4)
  1. DEXAMETHASONE 6MG IVP DAILY [Concomitant]
     Dates: start: 20200629
  2. NOREPINEPHRINE IV DRIP [Concomitant]
     Dates: start: 20200701
  3. ASPIRIN 81MG DAILY [Concomitant]
     Active Substance: ASPIRIN
     Dates: start: 20200627
  4. REMDESIVIR. [Suspect]
     Active Substance: REMDESIVIR
     Route: 042
     Dates: start: 20200629

REACTIONS (2)
  - Blood creatinine increased [None]
  - Renal impairment [None]

NARRATIVE: CASE EVENT DATE: 20200702
